FAERS Safety Report 25936532 (Version 1)
Quarter: 2025Q4

REPORT INFORMATION
  Report Type: Spontaneous
  Country: US (occurrence: None)
  Receive Date: 20251017
  Receipt Date: 20251017
  Transmission Date: 20260117
  Serious: No
  Sender: FDA-CTU
  Company Number: None

PATIENT
  Age: 76 Year
  Sex: Female
  Weight: 89145 kg

DRUGS (9)
  1. PREGABALIN [Suspect]
     Active Substance: PREGABALIN
     Indication: Pain
     Dosage: OTHER QUANTITY : 90 CAPSULE(S);?FREQUENCY : EVERY 8 HOURS;?
     Route: 048
     Dates: start: 20251017, end: 20251017
  2. Avostatin [Concomitant]
  3. HZTZ [Concomitant]
  4. VITAMINS [Concomitant]
     Active Substance: VITAMINS
  5. poly glycerin [Concomitant]
  6. LOW-DOSE ASPIRIN [Concomitant]
     Active Substance: ASPIRIN
  7. COENZYME Q10 [Concomitant]
     Active Substance: DIETARY SUPPLEMENT\UBIDECARENONE
  8. B12 [Concomitant]
  9. MAGNESIUM CITRATE [Concomitant]
     Active Substance: MAGNESIUM CITRATE

REACTIONS (6)
  - Middle insomnia [None]
  - Feeling drunk [None]
  - Balance disorder [None]
  - Visual impairment [None]
  - Hangover [None]
  - Gait disturbance [None]

NARRATIVE: CASE EVENT DATE: 20251017
